FAERS Safety Report 13931711 (Version 6)
Quarter: 2017Q4

REPORT INFORMATION
  Report Type: Spontaneous
  Country: IT (occurrence: IT)
  Receive Date: 20170904
  Receipt Date: 20171004
  Transmission Date: 20180320
  Serious: Yes (Hospitalization, Other)
  Sender: FDA-Public Use
  Company Number: IT-MYLANLABS-2017M1055281

PATIENT
  Age: 75 Year
  Sex: Female

DRUGS (6)
  1. CLOZAPINE. [Suspect]
     Active Substance: CLOZAPINE
     Indication: PRODUCT USED FOR UNKNOWN INDICATION
     Dosage: UNK
     Route: 048
  2. CLOZAPINE. [Suspect]
     Active Substance: CLOZAPINE
     Dosage: 75 MG, PM
     Route: 048
     Dates: start: 201708
  3. LORAZEPAM. [Suspect]
     Active Substance: LORAZEPAM
     Indication: PRODUCT USED FOR UNKNOWN INDICATION
     Dosage: UNK
     Route: 048
     Dates: end: 2017
  4. CLOZAPINE. [Suspect]
     Active Substance: CLOZAPINE
     Dosage: UNK
     Route: 048
     Dates: start: 201708, end: 2017
  5. XATRAL [Suspect]
     Active Substance: ALFUZOSIN
     Indication: INCONTINENCE
     Dosage: UNK
     Route: 048
     Dates: end: 2017
  6. XATRAL [Suspect]
     Active Substance: ALFUZOSIN
     Indication: HYPOTENSION

REACTIONS (7)
  - Coma scale abnormal [Unknown]
  - Miosis [Recovering/Resolving]
  - Drug abuse [Recovering/Resolving]
  - Toxicity to various agents [Recovering/Resolving]
  - Unresponsive to stimuli [Recovering/Resolving]
  - Sopor [Recovering/Resolving]
  - Psychomotor hyperactivity [Unknown]

NARRATIVE: CASE EVENT DATE: 2017
